FAERS Safety Report 11290959 (Version 1)
Quarter: 2015Q3

REPORT INFORMATION
  Report Type: Spontaneous
  Country: US (occurrence: US)
  Receive Date: 20150722
  Receipt Date: 20150722
  Transmission Date: 20151125
  Serious: No
  Sender: FDA-Public Use
  Company Number: US-UNITED THERAPEUTICS-UNT-2015-005656

PATIENT
  Age: 74 Year
  Sex: Female
  Weight: 88.44 kg

DRUGS (7)
  1. REMODULIN [Suspect]
     Active Substance: TREPROSTINIL
     Indication: PULMONARY ARTERIAL HYPERTENSION
     Dosage: 0.041 ?G/KG/MIN, CONTINUING
     Route: 058
     Dates: start: 20141106
  2. REMODULIN [Suspect]
     Active Substance: TREPROSTINIL
     Dosage: 0.026 ?G/KG/MIN, CONTINUING
     Route: 058
     Dates: start: 20141231
  3. REMODULIN [Suspect]
     Active Substance: TREPROSTINIL
     Dosage: 0.041 ?G/KG/MIN, CONTINUING
     Route: 058
  4. REMODULIN [Suspect]
     Active Substance: TREPROSTINIL
     Dosage: 0.041 ?G/KG/MIN, CONTINUING
     Route: 058
     Dates: start: 20141229
  5. TRACLEER [Concomitant]
     Active Substance: BOSENTAN
     Indication: PRODUCT USED FOR UNKNOWN INDICATION
  6. COUMADIN [Concomitant]
     Active Substance: WARFARIN SODIUM
     Indication: PRODUCT USED FOR UNKNOWN INDICATION
  7. REMODULIN [Suspect]
     Active Substance: TREPROSTINIL
     Dosage: 0.043 ?G/KG/MIN, CONTINUING
     Route: 058

REACTIONS (5)
  - Weight increased [Unknown]
  - Oedema peripheral [Not Recovered/Not Resolved]
  - Cough [Recovered/Resolved]
  - Infusion site haemorrhage [Unknown]
  - Oxygen saturation decreased [Unknown]

NARRATIVE: CASE EVENT DATE: 201505
